FAERS Safety Report 4283563-9 (Version None)
Quarter: 2004Q1

REPORT INFORMATION
  Report Type: 
  Country: None (occurrence: None)
  Receive Date: 20040202
  Receipt Date: 20031007
  Transmission Date: 20041129
  Serious: Yes (Other)
  Sender: FDA-Public Use
  Company Number: CA-GLAXOSMITHKLINE-A0429728A

PATIENT
  Age: 46 Year
  Sex: Male
  Weight: 118.2 kg

DRUGS (5)
  1. ADVAIR DISKUS 100/50 [Suspect]
     Indication: ASTHMA
     Dosage: 2PUFF TWICE PER DAY
     Route: 055
     Dates: start: 20030601, end: 20031001
  2. FLOVENT [Suspect]
     Indication: ASTHMA
     Route: 055
     Dates: start: 19990701
  3. FLONASE [Suspect]
     Dates: start: 20000101
  4. BECLOVENT [Suspect]
     Dates: start: 19940101, end: 19980101
  5. SINGULAIR [Concomitant]

REACTIONS (1)
  - ASEPTIC NECROSIS BONE [None]
